FAERS Safety Report 8274450-X (Version None)
Quarter: 2012Q2

REPORT INFORMATION
  Report Type: 
  Country: None (occurrence: None)
  Receive Date: 20120411
  Receipt Date: 20120327
  Transmission Date: 20120825
  Serious: Yes (Death, Hospitalization, Other)
  Sender: FDA-Public Use
  Company Number: US-ROCHE-786391

PATIENT
  Sex: Male
  Weight: 61.2 kg

DRUGS (3)
  1. ACCUTANE [Suspect]
     Route: 065
     Dates: start: 19960601, end: 19960801
  2. ACCUTANE [Suspect]
     Indication: ACNE
     Route: 065
     Dates: start: 19941101, end: 19941201
  3. ACCUTANE [Suspect]
     Route: 065

REACTIONS (7)
  - DEPRESSION [None]
  - COLON CANCER [None]
  - SMALL INTESTINAL OBSTRUCTION [None]
  - CROHN'S DISEASE [None]
  - COLITIS ULCERATIVE [None]
  - IRRITABLE BOWEL SYNDROME [None]
  - COLONIC POLYP [None]
